FAERS Safety Report 7764158-9 (Version None)
Quarter: 2011Q3

REPORT INFORMATION
  Report Type: 
  Country: None (occurrence: None)
  Receive Date: 20110920
  Receipt Date: 20110920
  Transmission Date: 20111222
  Serious: Yes (Disabling)
  Sender: FDA-Public Use
  Company Number: None

PATIENT
  Sex: Female
  Weight: 61.2356 kg

DRUGS (2)
  1. CLINDAMYCIN [Suspect]
     Indication: PELVIC INFLAMMATORY DISEASE
     Dosage: 1 50 MG 2X3 P/DAY MOUTH
     Route: 048
  2. CLINDAMYCIN [Suspect]
     Indication: VAGINITIS BACTERIAL
     Dosage: 1 50 MG 2X3 P/DAY MOUTH
     Route: 048

REACTIONS (3)
  - PAIN [None]
  - DRUG EFFECT DECREASED [None]
  - PRODUCT COUNTERFEIT [None]
